FAERS Safety Report 4469059-X (Version None)
Quarter: 2004Q4

REPORT INFORMATION
  Report Type: 
  Country: None (occurrence: None)
  Receive Date: 20041001
  Receipt Date: 20040922
  Transmission Date: 20050328
  Serious: Yes (Life-Threatening, Hospitalization)
  Sender: FDA-Public Use
  Company Number: C-04-004-M

PATIENT
  Sex: Female
  Weight: 15 kg

DRUGS (2)
  1. BETAINE [Suspect]
     Indication: BLOOD HOMOCYSTEINE INCREASED
     Dosage: 400 MG/KG TWICE DAILY, ORAL
     Route: 048
     Dates: start: 19990331, end: 19990413
  2. CYSTADANE [Suspect]
     Indication: BLOOD HOMOCYSTEINE INCREASED
     Dosage: 400 MG/KG TWICE DAILY, ORAL
     Route: 048
     Dates: start: 19990414, end: 19990526

REACTIONS (3)
  - BRAIN OEDEMA [None]
  - STRABISMUS [None]
  - VOMITING [None]
